FAERS Safety Report 5168171-X (Version None)
Quarter: 2006Q4

REPORT INFORMATION
  Report Type: 
  Country: None (occurrence: None)
  Receive Date: 20061130
  Receipt Date: 20061024
  Transmission Date: 20070319
  Serious: Yes (Death)
  Sender: FDA-Public Use
  Company Number: AND_AAPCC_2006_1218

PATIENT
  Age: 17 Year

DRUGS (3)
  1. ACETAMINOPHEN AND HYDROCODONE BITARTRATE [Suspect]
     Dosage: DF, 047
  2. METHAMPHETAMINE HYDROCHLORIDE [Suspect]
     Dosage: DF, 047
  3. ALPRAZOLAM [Suspect]

REACTIONS (4)
  - CARDIAC ARREST [None]
  - DRUG ABUSER [None]
  - INTENTIONAL DRUG MISUSE [None]
  - RESPIRATORY ARREST [None]
